FAERS Safety Report 7819049-1 (Version None)
Quarter: 2011Q4

REPORT INFORMATION
  Report Type: 
  Country: None (occurrence: None)
  Receive Date: 20111018
  Receipt Date: 20111006
  Transmission Date: 20120403
  Serious: No
  Sender: FDA-Public Use
  Company Number: US-B.I. PHARMACEUTICALS,INC./RIDGEFIELD-2011-BP-23689BP

PATIENT
  Sex: Female

DRUGS (3)
  1. CATAPRES-TTS-1 [Suspect]
  2. RIFAMPIN [Concomitant]
  3. BENICAR [Concomitant]

REACTIONS (5)
  - URTICARIA [None]
  - BEDRIDDEN [None]
  - HYPOTENSION [None]
  - OEDEMA PERIPHERAL [None]
  - ERYTHEMA [None]
